FAERS Safety Report 9927289 (Version 1)
Quarter: 2014Q1

REPORT INFORMATION
  Report Type: Spontaneous
  Country: US (occurrence: US)
  Receive Date: 20140226
  Receipt Date: 20140226
  Transmission Date: 20141002
  Serious: No
  Sender: FDA-Public Use
  Company Number: US-GILEAD-2014-0095328

PATIENT
  Sex: Male

DRUGS (2)
  1. VIREAD [Suspect]
     Indication: HEPATITIS B
     Dosage: 1 DF, Q3DAYS
     Route: 065
  2. VIREAD [Suspect]
     Dosage: 1 DF, QD
     Route: 065

REACTIONS (1)
  - Intentional drug misuse [Unknown]
